FAERS Safety Report 10650106 (Version 3)
Quarter: 2014Q4

REPORT INFORMATION
  Report Type: Report from Study
  Country: IL (occurrence: IL)
  Receive Date: 20141212
  Receipt Date: 20141219
  Transmission Date: 20150529
  Serious: Yes (Hospitalization, Disabling, Other)
  Sender: FDA-Public Use
  Company Number: IL-AMGEN-ISRCT2014085612

PATIENT
  Age: 66 Year
  Sex: Female
  Weight: 62 kg

DRUGS (20)
  1. PHENERGAN [Concomitant]
     Active Substance: PROMETHAZINE HYDROCHLORIDE
     Dosage: 6.25 MG, UNK
     Route: 042
     Dates: start: 20141028, end: 20141028
  2. LOSEC [Concomitant]
     Active Substance: OMEPRAZOLE
     Dosage: 20 MG, UNK
     Route: 048
     Dates: start: 20141022, end: 20141031
  3. DAPSONE. [Concomitant]
     Active Substance: DAPSONE
     Dosage: 100 MG, UNK
     Route: 048
     Dates: start: 20141031, end: 20141125
  4. BLINATUMOMAB [Suspect]
     Active Substance: BLINATUMOMAB
     Indication: ACUTE LYMPHOCYTIC LEUKAEMIA
     Dosage: 28 MUG, UNK
     Route: 041
     Dates: start: 20141028
  5. DURAGESIC [Concomitant]
     Active Substance: FENTANYL
     Dosage: 25 UG, UNK
     Route: 061
     Dates: start: 20141022, end: 20141110
  6. FUSID                              /00032601/ [Concomitant]
     Dosage: 20 MG, UNK
     Route: 042
     Dates: start: 20141024, end: 20141110
  7. DEXAMETHASONE. [Concomitant]
     Active Substance: DEXAMETHASONE
     Dosage: 10 - 40 MG, UNK
     Dates: start: 20141022, end: 20141116
  8. VFEND [Concomitant]
     Active Substance: VORICONAZOLE
     Dosage: 200 MG, UNK
     Route: 048
     Dates: start: 20141022, end: 20141107
  9. RESPRIM [Concomitant]
     Dosage: 2 UNK, UNK
     Route: 048
     Dates: start: 20141022, end: 20141026
  10. MORPHINE [Concomitant]
     Active Substance: MORPHINE
     Dosage: 3 MG, UNK
     Route: 042
     Dates: start: 20141024, end: 20141125
  11. OXYCOD                             /00045603/ [Concomitant]
     Dosage: 4 ML, UNK
     Route: 042
     Dates: start: 20141023, end: 20141120
  12. PLATELETS [Concomitant]
     Active Substance: HUMAN PLATELET, ALLOGENIC
     Dosage: 6 UNK, UNK
     Route: 042
     Dates: start: 20141024
  13. CIPROXIN                           /00697201/ [Concomitant]
     Dosage: 500 MG, UNK
     Route: 048
     Dates: start: 20141029, end: 20141110
  14. BLOOD CELLS, PACKED HUMAN [Concomitant]
     Dosage: 1-6 UNK, UNK
     Route: 042
     Dates: start: 20141028, end: 20141122
  15. MAALOX ANTACID [Concomitant]
     Active Substance: ALUMINUM HYDROXIDE\DIMETHICONE\MAGNESIUM HYDROXIDE
     Dosage: 30 ML, UNK
     Route: 042
     Dates: start: 20141029, end: 20141029
  16. HALIDOL [Concomitant]
     Dosage: 500 MG, UNK
     Route: 048
     Dates: start: 20141025, end: 20141106
  17. AHISTON [Concomitant]
     Dosage: 2 MG, UNK
     Route: 048
     Dates: start: 20141027, end: 20141103
  18. OPTALGIN [Concomitant]
     Active Substance: METAMIZOLE
     Dosage: 500 MG, UNK
     Route: 042
     Dates: start: 20141022, end: 20141123
  19. AVILAC                             /00163401/ [Concomitant]
     Dosage: 30 ML, UNK
     Route: 042
     Dates: start: 20141023, end: 20141029
  20. ZYLOL [Concomitant]
     Dosage: 300 MG, UNK
     Route: 048
     Dates: start: 20141022, end: 20141107

REACTIONS (3)
  - Subdural haemorrhage [Not Recovered/Not Resolved]
  - Bacterial infection [Not Recovered/Not Resolved]
  - Somnolence [Recovered/Resolved]

NARRATIVE: CASE EVENT DATE: 20141103
